FAERS Safety Report 18894430 (Version 3)
Quarter: 2022Q2

REPORT INFORMATION
  Report Type: Spontaneous
  Country: US (occurrence: US)
  Receive Date: 20210215
  Receipt Date: 20220411
  Transmission Date: 20220721
  Serious: Yes (Other)
  Sender: FDA-Public Use
  Company Number: US-NOVARTISPH-NVSC2020US291329

PATIENT
  Age: 8 Year
  Sex: Male
  Weight: 28 kg

DRUGS (1)
  1. KYMRIAH [Suspect]
     Active Substance: TISAGENLECLEUCEL
     Indication: Acute lymphocytic leukaemia recurrent
     Dosage: 2500000 KG, ONCE/SINGLE
     Route: 042
     Dates: start: 20191217, end: 20191217

REACTIONS (2)
  - B-cell aplasia [Unknown]
  - Post-depletion B-cell recovery [Not Recovered/Not Resolved]

NARRATIVE: CASE EVENT DATE: 20200301
